FAERS Safety Report 14275836 (Version 3)
Quarter: 2018Q4

REPORT INFORMATION
  Report Type: Spontaneous
  Country: US (occurrence: US)
  Receive Date: 20171211
  Receipt Date: 20181218
  Transmission Date: 20190204
  Serious: Yes (Disabling, Other)
  Sender: FDA-Public Use
  Company Number: US-OTSUKA-2017_013682

PATIENT
  Age: 47 Year
  Sex: Male

DRUGS (21)
  1. ABILIFY [Suspect]
     Active Substance: ARIPIPRAZOLE
     Dosage: 10 MG, QD
     Route: 065
     Dates: end: 201606
  2. SIMVASTATIN. [Concomitant]
     Active Substance: SIMVASTATIN
     Indication: BLOOD CHOLESTEROL ABNORMAL
     Dosage: TAKE ONE HALF TABLET BY MOUTH EVERY EVENING
     Route: 048
     Dates: end: 20161105
  3. SERTRALINE HCL [Concomitant]
     Active Substance: SERTRALINE HYDROCHLORIDE
     Indication: AFFECTIVE DISORDER
     Dosage: TAKE ONE AND ONE HALF TABLET EVERY MORNING
     Route: 048
     Dates: end: 20170614
  4. ARIPIPRAZOLE. [Concomitant]
     Active Substance: ARIPIPRAZOLE
     Indication: AFFECTIVE DISORDER
     Dosage: TAKE ONE-HALF TABLET
     Route: 048
     Dates: end: 20170614
  5. LISINOPRIL. [Concomitant]
     Active Substance: LISINOPRIL
     Indication: INFLAMMATION
  6. SILDENAFIL CITRATE. [Concomitant]
     Active Substance: SILDENAFIL CITRATE
     Indication: PRODUCT USED FOR UNKNOWN INDICATION
     Dosage: TAKE ONE ALF TABLET EVERY DAY
     Route: 048
     Dates: end: 20161105
  7. GABAPENTIN. [Concomitant]
     Active Substance: GABAPENTIN
     Indication: NEUROPATHY PERIPHERAL
  8. TRIAMCINOLONE ACETONIDE. [Concomitant]
     Active Substance: TRIAMCINOLONE ACETONIDE
     Indication: PRODUCT USED FOR UNKNOWN INDICATION
     Dosage: APPLY ON AFFECTED AREA TWICE A DAY
     Route: 065
     Dates: end: 20130523
  9. ABILIFY [Suspect]
     Active Substance: ARIPIPRAZOLE
     Indication: POST-TRAUMATIC STRESS DISORDER
     Dosage: 5 MG, UNK
     Route: 065
  10. BUSPIRONE [Concomitant]
     Active Substance: BUSPIRONE HYDROCHLORIDE
     Indication: ANXIETY
     Dosage: 1 DF, BID
     Route: 048
     Dates: end: 20170614
  11. GABAPENTIN. [Concomitant]
     Active Substance: GABAPENTIN
     Indication: NEURALGIA
     Dosage: 1 DF, QD
     Route: 048
     Dates: end: 20160622
  12. ALBUTEROL. [Concomitant]
     Active Substance: ALBUTEROL
     Indication: DYSPNOEA
     Dosage: TAKE 2 PUFFS INHALED BY MOUTH FOUR TIMES A DAY
     Route: 048
     Dates: end: 20170707
  13. DICLOFENAC [Concomitant]
     Active Substance: DICLOFENAC
     Indication: INFLAMMATION
  14. LISINOPRIL. [Concomitant]
     Active Substance: LISINOPRIL
     Indication: PAIN
     Dosage: ONE HALF TABLET, QD
     Dates: end: 20161105
  15. HYDROCODONE [Concomitant]
     Active Substance: HYDROCODONE
     Indication: PAIN
     Dosage: 1 DF, TID
     Route: 048
     Dates: end: 20160805
  16. CITIRIZINE [Concomitant]
     Indication: HYPERSENSITIVITY
     Dosage: 1 DF, QD
     Route: 048
     Dates: end: 20120626
  17. FLUNISOLIDE. [Concomitant]
     Active Substance: FLUNISOLIDE
     Indication: HYPERSENSITIVITY
     Dosage: USE 2 SPRAYS IN BOTH NOSTRILS EVERY DAY
     Route: 045
     Dates: end: 20120626
  18. ABILIFY [Suspect]
     Active Substance: ARIPIPRAZOLE
     Indication: BIPOLAR DISORDER
     Dosage: 2 MG, QD
     Route: 065
  19. PRAZOSIN HCL [Concomitant]
     Active Substance: PRAZOSIN HYDROCHLORIDE
     Indication: BLOOD PRESSURE ABNORMAL
     Dosage: 1 DF, QD AT NIGHT
     Route: 048
     Dates: end: 20170614
  20. DICLOFENAC [Concomitant]
     Active Substance: DICLOFENAC
     Indication: PAIN
     Dosage: UNK
     Route: 048
     Dates: end: 20161105
  21. KETOCONAZOLE. [Concomitant]
     Active Substance: KETOCONAZOLE
     Indication: PRODUCT USED FOR UNKNOWN INDICATION
     Dosage: APPLY ON AFFTECTED AREA TWICE A DAY
     Route: 065
     Dates: end: 20130606

REACTIONS (13)
  - Obsessive-compulsive disorder [Unknown]
  - Off label use [Unknown]
  - Condition aggravated [Recovered/Resolved]
  - Emotional distress [Unknown]
  - Eating disorder [Unknown]
  - Injury [Unknown]
  - Pain [Unknown]
  - Gambling disorder [Recovered/Resolved]
  - Weight increased [Unknown]
  - Anxiety [Unknown]
  - Product use in unapproved indication [Unknown]
  - Economic problem [Unknown]
  - Disability [Unknown]

NARRATIVE: CASE EVENT DATE: 200303
